FAERS Safety Report 24142349 (Version 1)
Quarter: 2024Q3

REPORT INFORMATION
  Report Type: Report from Study
  Country: US (occurrence: None)
  Receive Date: 20240726
  Receipt Date: 20240726
  Transmission Date: 20241017
  Serious: Yes (Hospitalization)
  Sender: ASTRAZENECA
  Company Number: 2020SE84047

PATIENT
  Age: 58 Year
  Sex: Female

DRUGS (1)
  1. LYNPARZA [Suspect]
     Active Substance: OLAPARIB
     Indication: Ovarian cancer
     Route: 048

REACTIONS (8)
  - Intestinal obstruction [Recovered/Resolved]
  - Vomiting [Unknown]
  - Headache [Unknown]
  - Hyperhidrosis [Unknown]
  - Dry mouth [Unknown]
  - Hot flush [Unknown]
  - Illness [Unknown]
  - Feeling cold [Unknown]
